FAERS Safety Report 4478144-8 (Version None)
Quarter: 2004Q4

REPORT INFORMATION
  Report Type: 
  Country: None (occurrence: None)
  Receive Date: 20041013
  Receipt Date: 20040929
  Transmission Date: 20050328
  Serious: Yes (Life-Threatening, Hospitalization, Disabling)
  Sender: FDA-Public Use
  Company Number: DE_040613799

PATIENT
  Age: 67 Year
  Sex: Female

DRUGS (4)
  1. FORTEO [Suspect]
     Indication: OSTEOPOROSIS
     Dosage: 20 UG/1 DAY
     Dates: start: 20031123, end: 20040501
  2. FORTEO [Suspect]
     Indication: SPINAL FRACTURE
     Dosage: 20 UG/1 DAY
     Dates: start: 20031123, end: 20040501
  3. ANTICOAGULANT CIT PHOS DEX ADENINE [Concomitant]
  4. ANTIPHLOGISTINE [Concomitant]

REACTIONS (1)
  - CEREBROVASCULAR ACCIDENT [None]
